FAERS Safety Report 9023482 (Version 3)
Quarter: 2013Q3

REPORT INFORMATION
  Report Type: Report from Study
  Country: DE (occurrence: DE)
  Receive Date: 20130121
  Receipt Date: 20130806
  Transmission Date: 20140515
  Serious: Yes (Hospitalization, Other)
  Sender: FDA-Public Use
  Company Number: DE-ABBOTT-13P-062-1036398-00

PATIENT
  Age: 59 Year
  Sex: Male
  Weight: 73 kg

DRUGS (5)
  1. HUMIRA [Suspect]
     Indication: ANKYLOSING SPONDYLITIS
     Route: 058
     Dates: start: 20111011, end: 20121230
  2. HUMIRA [Suspect]
     Route: 058
     Dates: start: 20130507
  3. CELEBREX [Concomitant]
     Indication: ANKYLOSING SPONDYLITIS
     Dates: start: 2011
  4. PREDNISOLONE [Concomitant]
     Indication: ANKYLOSING SPONDYLITIS
  5. OMEPRAZOLE [Concomitant]
     Indication: PRODUCT USED FOR UNKNOWN INDICATION

REACTIONS (2)
  - Pleurisy [Recovered/Resolved]
  - Pneumonia [Recovered/Resolved]
